FAERS Safety Report 15669038 (Version 1)
Quarter: 2018Q4

REPORT INFORMATION
  Report Type: Spontaneous
  Country: US (occurrence: US)
  Receive Date: 20181129
  Receipt Date: 20181129
  Transmission Date: 20190205
  Serious: No
  Sender: FDA-Public Use
  Company Number: US-GLENMARK PHARMACEUTICALS-2018GMK037678

PATIENT

DRUGS (3)
  1. ACIDOPHILUS [Concomitant]
     Active Substance: LACTOBACILLUS ACIDOPHILUS
     Indication: SUPPLEMENTATION THERAPY
     Dosage: UNK
     Route: 065
  2. TYLENOL [Concomitant]
     Active Substance: ACETAMINOPHEN
     Indication: PAIN
     Dosage: UNK
     Route: 065
  3. CICLOPIROX OLAMINE CREAM USP, 0.77% [Suspect]
     Active Substance: CICLOPIROX OLAMINE
     Indication: DERMATITIS ALLERGIC
     Dosage: UNK, BID
     Route: 061
     Dates: start: 20180926

REACTIONS (3)
  - Constipation [Recovered/Resolved]
  - Product use in unapproved indication [Unknown]
  - Dry mouth [Recovered/Resolved]

NARRATIVE: CASE EVENT DATE: 2018
